FAERS Safety Report 18954688 (Version 1)
Quarter: 2021Q1

REPORT INFORMATION
  Report Type: Spontaneous
  Country: US (occurrence: US)
  Receive Date: 20210301
  Receipt Date: 20210301
  Transmission Date: 20210420
  Serious: No
  Sender: FDA-Public Use
  Company Number: US-ALEMBIC PHARMACUETICALS LIMITED-2021SCAL000086

PATIENT

DRUGS (2)
  1. ASENAPINE. [Suspect]
     Active Substance: ASENAPINE
     Indication: BIPOLAR DISORDER
     Dosage: 5 MILLIGRAM, IN MORNING
     Route: 048
     Dates: start: 20210110
  2. ASENAPINE. [Suspect]
     Active Substance: ASENAPINE
     Dosage: 15 MILLIGRAM, BEFORE BEDTIME
     Route: 048
     Dates: start: 20210110

REACTIONS (1)
  - Product use complaint [Not Recovered/Not Resolved]

NARRATIVE: CASE EVENT DATE: 20210110
